FAERS Safety Report 6890738-9 (Version None)
Quarter: 2010Q3

REPORT INFORMATION
  Report Type: 
  Country: None (occurrence: None)
  Receive Date: 20100731
  Receipt Date: 20090309
  Transmission Date: 20110219
  Serious: No
  Sender: FDA-Public Use
  Company Number: US-PFIZER INC-2006020841

PATIENT
  Age: 53 Year
  Sex: Male
  Weight: 86.18 kg

DRUGS (1)
  1. LIPITOR [Suspect]
     Indication: BLOOD CHOLESTEROL INCREASED
     Dosage: 10 MG, 1X/DAY
     Route: 048

REACTIONS (4)
  - GASTROOESOPHAGEAL REFLUX DISEASE [None]
  - HAEMANGIOMA OF LIVER [None]
  - MYALGIA [None]
  - WRONG TECHNIQUE IN DRUG USAGE PROCESS [None]
